FAERS Safety Report 5515908-3 (Version None)
Quarter: 2007Q4

REPORT INFORMATION
  Report Type: 
  Country: None (occurrence: None)
  Receive Date: 20071114
  Receipt Date: 20060208
  Transmission Date: 20080405
  Serious: No
  Sender: FDA-Public Use
  Company Number: A0590349A

PATIENT
  Sex: Male

DRUGS (4)
  1. NICOTINE LOZENGE [Suspect]
     Dosage: 1LOZ IN THE MORNING
     Route: 048
     Dates: start: 20051001
  2. NICOTINE [Suspect]
     Dosage: 21MG IN THE MORNING
     Route: 062
     Dates: start: 20051001
  3. NICOTINE [Suspect]
     Dosage: 14MG TWICE PER DAY
     Route: 062
     Dates: start: 20051001, end: 20051001
  4. NICOTINE [Suspect]
     Dosage: 2MG TWICE PER DAY
     Dates: start: 20051001

REACTIONS (3)
  - LOCAL SWELLING [None]
  - PRURITUS [None]
  - URTICARIA [None]
